FAERS Safety Report 5568869-5 (Version None)
Quarter: 2007Q4

REPORT INFORMATION
  Report Type: 
  Country: None (occurrence: None)
  Receive Date: 20071220
  Receipt Date: 20070221
  Transmission Date: 20080405
  Serious: No
  Sender: FDA-Public Use
  Company Number: A0640428A

PATIENT
  Age: 79 Year
  Sex: Male

DRUGS (8)
  1. AVODART [Suspect]
     Indication: BENIGN PROSTATIC HYPERPLASIA
     Dosage: 5MG PER DAY
     Route: 048
  2. COZAAR [Concomitant]
  3. FOLIC ACID [Concomitant]
  4. ASPIRIN [Concomitant]
  5. NEXIUM [Concomitant]
  6. MULTI-VITAMIN [Concomitant]
  7. AMBIEN [Concomitant]
  8. PROVIGIL [Concomitant]

REACTIONS (3)
  - ERYTHEMA [None]
  - SCROTAL ERYTHEMA [None]
  - TINEA CRURIS [None]
